FAERS Safety Report 5524937-5 (Version None)
Quarter: 2007Q4

REPORT INFORMATION
  Report Type: 
  Country: None (occurrence: None)
  Receive Date: 20071119
  Receipt Date: 20071102
  Transmission Date: 20080405
  Serious: Yes (Hospitalization)
  Sender: FDA-Public Use
  Company Number: S07-FRA-05891-01

PATIENT
  Age: 44 Year
  Sex: Male

DRUGS (5)
  1. AOTAL                         (ACAMPROSATE) [Suspect]
     Dates: start: 20070904, end: 20070904
  2. METHADONE [Suspect]
     Dosage: 120 MG QD PO
     Route: 048
     Dates: end: 20070904
  3. REVIA [Suspect]
     Dates: start: 20070904, end: 20070904
  4. MIDAZOLAM HCL [Suspect]
     Dosage: 10 MG QD IV
     Route: 042
     Dates: start: 20070904, end: 20070904
  5. TRANXENE [Concomitant]

REACTIONS (3)
  - CARDIOMYOPATHY [None]
  - CONFUSIONAL STATE [None]
  - HYPOTHERMIA [None]
